FAERS Safety Report 5151973-3 (Version None)
Quarter: 2006Q4

REPORT INFORMATION
  Report Type: 
  Country: None (occurrence: None)
  Receive Date: 20061109
  Receipt Date: 20061017
  Transmission Date: 20070319
  Serious: Yes (Disabling, Other)
  Sender: FDA-Public Use
  Company Number: 2005106818

PATIENT
  Age: 63 Year
  Sex: Male
  Weight: 86 kg

DRUGS (2)
  1. ZITHROMAX [Suspect]
     Indication: NASOPHARYNGITIS
     Dosage: 500 MG (500 MG), ORAL
     Route: 048
     Dates: start: 20050321, end: 20050323
  2. PARACODIN        (DIHYDROCODEINE BITARTRATE) [Concomitant]

REACTIONS (3)
  - ANOSMIA [None]
  - DYSGEUSIA [None]
  - PAROSMIA [None]
